FAERS Safety Report 6739247-8 (Version None)
Quarter: 2010Q2

REPORT INFORMATION
  Report Type: 
  Country: None (occurrence: None)
  Receive Date: 20100524
  Receipt Date: 20100524
  Transmission Date: 20101027
  Serious: Yes (Other)
  Sender: FDA-Public Use
  Company Number: None

PATIENT
  Age: 38 Year
  Sex: Female
  Weight: 76.2043 kg

DRUGS (1)
  1. DECADRON [Suspect]
     Indication: RASH
     Dosage: 8MG TAPERED TO 1MG DAILY FOR 14 DAYS PO
     Route: 048
     Dates: start: 20100430, end: 20100510

REACTIONS (10)
  - DIZZINESS [None]
  - FATIGUE [None]
  - HEADACHE [None]
  - HOT FLUSH [None]
  - INTRA-ABDOMINAL PRESSURE INCREASED [None]
  - MUSCULAR WEAKNESS [None]
  - NAUSEA [None]
  - TREMOR [None]
  - VASCULAR RUPTURE [None]
  - VISION BLURRED [None]
